FAERS Safety Report 8118417-0 (Version None)
Quarter: 2012Q1

REPORT INFORMATION
  Report Type: 
  Country: None (occurrence: None)
  Receive Date: 20120201
  Receipt Date: 20120119
  Transmission Date: 20120608
  Serious: Yes (Death, Other)
  Sender: FDA-Public Use
  Company Number: US-2012-10049

PATIENT
  Age: 27 Year
  Sex: Male

DRUGS (3)
  1. FLUDARABINE PHOSPHATE [Concomitant]
  2. PHENYTOIN [Concomitant]
  3. BUSULFAN [Suspect]
     Indication: STEM CELL TRANSPLANT
     Dosage: 32 MG/KG, DAILY DOSE, INTRAVENOUS

REACTIONS (3)
  - MULTI-ORGAN FAILURE [None]
  - SEPSIS [None]
  - POSTERIOR REVERSIBLE ENCEPHALOPATHY SYNDROME [None]
